FAERS Safety Report 4333899-8 (Version None)
Quarter: 2004Q2

REPORT INFORMATION
  Report Type: 
  Country: None (occurrence: None)
  Receive Date: 20040402
  Receipt Date: 20040322
  Transmission Date: 20050107
  Serious: Yes (Hospitalization)
  Sender: FDA-Public Use
  Company Number: 04P-163-0254224-00

PATIENT
  Age: 13 Year
  Sex: Female
  Weight: 53.0709 kg

DRUGS (2)
  1. BIAXIN [Suspect]
     Indication: EAR INFECTION
     Dosage: PER ORAL  ; 1000 MG, 1 IN 1 D, PER ORAL
     Route: 048
     Dates: start: 20020101, end: 20020101
  2. BIAXIN [Suspect]
     Indication: EAR INFECTION
     Dosage: PER ORAL  ; 1000 MG, 1 IN 1 D, PER ORAL
     Route: 048
     Dates: start: 20040317, end: 20040318

REACTIONS (3)
  - MUSCLE CRAMP [None]
  - PAIN IN EXTREMITY [None]
  - PARALYSIS [None]
